FAERS Safety Report 7210536-6 (Version None)
Quarter: 2011Q1

REPORT INFORMATION
  Report Type: 
  Country: None (occurrence: None)
  Receive Date: 20110105
  Receipt Date: 20101230
  Transmission Date: 20110831
  Serious: Yes (Hospitalization)
  Sender: FDA-Public Use
  Company Number: FR-ROCHE-751143

PATIENT
  Sex: Female

DRUGS (6)
  1. TERALITHE [Suspect]
     Route: 048
  2. CIPROFLOXACIN HYDROCHLORIDE [Concomitant]
     Dates: start: 20101208
  3. RIVOTRIL [Suspect]
     Route: 048
  4. ROCEPHIN [Concomitant]
     Dates: start: 20101209
  5. THERALENE [Suspect]
     Route: 048
  6. NEXIUM [Suspect]
     Route: 065

REACTIONS (2)
  - CHOLESTASIS [None]
  - CELL DEATH [None]
